FAERS Safety Report 16369762 (Version 1)
Quarter: 2019Q2

REPORT INFORMATION
  Report Type: Spontaneous
  Country: CN (occurrence: CN)
  Receive Date: 20190530
  Receipt Date: 20190530
  Transmission Date: 20190711
  Serious: Yes (Death, Other)
  Sender: FDA-Public Use
  Company Number: CN-ROCHE-2326500

PATIENT
  Age: 52 Year
  Sex: Female

DRUGS (4)
  1. CAPECITABINE. [Suspect]
     Active Substance: CAPECITABINE
     Indication: RECTAL ADENOMA
     Route: 048
     Dates: start: 201710, end: 201712
  2. CALCIUM FOLINATE [Concomitant]
     Active Substance: LEUCOVORIN CALCIUM
  3. OXALIPLATIN. [Concomitant]
     Active Substance: OXALIPLATIN
     Indication: RECTAL ADENOMA
     Route: 065
     Dates: start: 201710, end: 201712
  4. FLUOROURACIL. [Concomitant]
     Active Substance: FLUOROURACIL

REACTIONS (3)
  - Biliary dilatation [Unknown]
  - Hepatic function abnormal [Unknown]
  - Jaundice [Unknown]

NARRATIVE: CASE EVENT DATE: 2018
